FAERS Safety Report 6440155-0 (Version None)
Quarter: 2009Q4

REPORT INFORMATION
  Report Type: 
  Country: None (occurrence: None)
  Receive Date: 20091113
  Receipt Date: 20090810
  Transmission Date: 20100525
  Serious: No
  Sender: FDA-Public Use
  Company Number: A0779200A

PATIENT
  Age: 81 Year
  Sex: Female

DRUGS (5)
  1. CARVEDILOL [Suspect]
     Dosage: 12.5MG TWICE PER DAY
     Route: 048
     Dates: start: 20080101, end: 20081201
  2. COREG CR [Suspect]
     Dosage: 10MG PER DAY
     Route: 048
     Dates: start: 20090101
  3. DIGOXIN [Concomitant]
  4. LISINOPRIL [Concomitant]
  5. SIMVASTATIN [Concomitant]

REACTIONS (4)
  - DECREASED APPETITE [None]
  - EARLY SATIETY [None]
  - RHINORRHOEA [None]
  - WEIGHT DECREASED [None]
